FAERS Safety Report 17463563 (Version 2)
Quarter: 2020Q1

REPORT INFORMATION
  Report Type: Spontaneous
  Country: FR (occurrence: FR)
  Receive Date: 20200226
  Receipt Date: 20200228
  Transmission Date: 20200409
  Serious: Yes (Life-Threatening, Hospitalization)
  Sender: FDA-Public Use
  Company Number: FR-SA-2020SA049605

PATIENT
  Age: 63 Year
  Sex: Male
  Weight: 90.5 kg

DRUGS (1)
  1. ALPROLIX [Suspect]
     Active Substance: EFTRENONACOG ALFA
     Indication: POST PROCEDURAL HAEMORRHAGE
     Route: 042
     Dates: start: 20200129, end: 20200129

REACTIONS (3)
  - Chest pain [Unknown]
  - Thrombophlebitis superficial [Not Recovered/Not Resolved]
  - Pain in extremity [Unknown]

NARRATIVE: CASE EVENT DATE: 20200130
